FAERS Safety Report 9222084 (Version 1)
Quarter: 2013Q1

REPORT INFORMATION
  Report Type: Spontaneous
  Country: US (occurrence: None)
  Receive Date: 20120910
  Receipt Date: 20120910
  Transmission Date: 20140127
  Serious: No
  Sender: FDA-Public Use
  Company Number: 1206USA03066

PATIENT
  Age: 75 Year
  Sex: Female

DRUGS (3)
  1. ZIOPTAN (TAFLUPROST) EYE DROPS, SOLUTION, 0.0015% [Suspect]
     Indication: GLAUCOMA
     Route: 047
     Dates: start: 201205
  2. DIOVAN (VALSARTAN) [Concomitant]
  3. LEVOTIROXINA S.O (LEVOTHYROXINE SODIUM) TABLET [Concomitant]

REACTIONS (1)
  - Blood glucose increased [None]
